FAERS Safety Report 4421811-2 (Version None)
Quarter: 2004Q3

REPORT INFORMATION
  Report Type: 
  Country: None (occurrence: None)
  Receive Date: 20040809
  Receipt Date: 20040809
  Transmission Date: 20050211
  Serious: No
  Sender: FDA-Public Use
  Company Number: None

PATIENT
  Age: 30 Year
  Sex: Male
  Weight: 90.7194 kg

DRUGS (1)
  1. PANLOR DC PAM LAB [Suspect]
     Dosage: 1 TO 2 EVERY 4 HO ORAL
     Route: 048
     Dates: start: 20040802, end: 20040804

REACTIONS (1)
  - MEDICATION ERROR [None]
